FAERS Safety Report 19497152 (Version 1)
Quarter: 2021Q3

REPORT INFORMATION
  Report Type: Spontaneous
  Country: US (occurrence: US)
  Receive Date: 20210702
  Receipt Date: 20210702
  Transmission Date: 20211014
  Serious: No
  Sender: FDA-Public Use
  Company Number: None

PATIENT
  Age: 72 Year
  Sex: Male

DRUGS (1)
  1. ZYTIGA [Suspect]
     Active Substance: ABIRATERONE ACETATE
     Route: 048
     Dates: start: 20200206

REACTIONS (4)
  - Myocardial infarction [None]
  - Hiatus hernia [None]
  - Pneumonia [None]
  - Seizure [None]

NARRATIVE: CASE EVENT DATE: 20200330
